FAERS Safety Report 14416634 (Version 2)
Quarter: 2018Q2

REPORT INFORMATION
  Report Type: Report from Study
  Country: CO (occurrence: CO)
  Receive Date: 20180122
  Receipt Date: 20180423
  Transmission Date: 20180711
  Serious: Yes (Death, Hospitalization, Other)
  Sender: FDA-Public Use
  Company Number: CO-ACTELION-A-US2017-152400

PATIENT
  Age: 59 Year
  Sex: Female

DRUGS (1)
  1. VENTAVIS [Suspect]
     Active Substance: ILOPROST
     Indication: PULMONARY HYPERTENSION
     Dosage: 5 DF, 6ID
     Route: 055
     Dates: start: 20160621, end: 20171212

REACTIONS (2)
  - Cardio-respiratory arrest [Fatal]
  - Tachycardia [Not Recovered/Not Resolved]

NARRATIVE: CASE EVENT DATE: 20170331
